FAERS Safety Report 24631635 (Version 1)
Quarter: 2024Q4

REPORT INFORMATION
  Report Type: Spontaneous
  Country: US (occurrence: US)
  Receive Date: 20241118
  Receipt Date: 20241118
  Transmission Date: 20250114
  Serious: Yes (Hospitalization)
  Sender: DOMPE FARMACEUTICI
  Company Number: US-FARMAPROD-202410-3484

PATIENT
  Sex: Female

DRUGS (3)
  1. OXERVATE [Suspect]
     Active Substance: CENEGERMIN-BKBJ
     Indication: Neurotrophic keratopathy
     Route: 047
     Dates: start: 20240926
  2. OXERVATE [Suspect]
     Active Substance: CENEGERMIN-BKBJ
     Indication: Hypoaesthesia eye
  3. TOBRAMYCIN [Concomitant]
     Active Substance: TOBRAMYCIN\TOBRAMYCIN SULFATE

REACTIONS (3)
  - Infection [Unknown]
  - Eye pain [Recovering/Resolving]
  - Intentional product misuse [Unknown]
